FAERS Safety Report 14972643 (Version 1)
Quarter: 2018Q2

REPORT INFORMATION
  Report Type: Spontaneous
  Country: US (occurrence: US)
  Receive Date: 20180605
  Receipt Date: 20180605
  Transmission Date: 20180711
  Serious: No
  Sender: FDA-Public Use
  Company Number: US-ELI_LILLY_AND_COMPANY-US201806000308

PATIENT
  Age: 45 Year
  Sex: Male

DRUGS (1)
  1. TALTZ [Suspect]
     Active Substance: IXEKIZUMAB
     Indication: PSORIASIS
     Dosage: UNK, LOADING DOSE
     Route: 058
     Dates: start: 20180321

REACTIONS (7)
  - Injection site reaction [Recovered/Resolved]
  - Injection site warmth [Unknown]
  - Injection site erythema [Unknown]
  - Flushing [Unknown]
  - Erythema [Unknown]
  - Nausea [Not Recovered/Not Resolved]
  - Injection site swelling [Unknown]

NARRATIVE: CASE EVENT DATE: 20180515
